FAERS Safety Report 11232386 (Version 28)
Quarter: 2022Q4

REPORT INFORMATION
  Report Type: Report from Study
  Country: JP (occurrence: JP)
  Receive Date: 20150701
  Receipt Date: 20221122
  Transmission Date: 20230113
  Serious: Yes (Death, Life-Threatening, Hospitalization, Disabling, Other)
  Sender: FDA-Public Use
  Company Number: JP-BRISTOL-MYERS SQUIBB COMPANY-BMS-2015-041921

PATIENT
  Age: 81 Year
  Sex: Male
  Weight: 85 kg

DRUGS (13)
  1. OPDIVO [Suspect]
     Active Substance: NIVOLUMAB
     Indication: Malignant melanoma
     Dosage: 174 MILLIGRAM
     Route: 041
     Dates: start: 20150514, end: 20150514
  2. DONEPEZIL HYDROCHLORIDE [Concomitant]
     Active Substance: DONEPEZIL HYDROCHLORIDE
     Indication: Dementia
     Dosage: UNK
     Route: 048
  3. AMLODIPINE BESYLATE [Concomitant]
     Active Substance: AMLODIPINE BESYLATE
     Indication: Hypertension
     Dosage: UNK
     Route: 048
  4. CANDESARTAN CILEXETIL\HYDROCHLOROTHIAZIDE [Concomitant]
     Active Substance: CANDESARTAN CILEXETIL\HYDROCHLOROTHIAZIDE
     Indication: Hypertension
     Dosage: UNK
     Route: 048
  5. PIOGLITAZONE HYDROCHLORIDE [Concomitant]
     Active Substance: PIOGLITAZONE HYDROCHLORIDE
     Indication: Diabetes mellitus
     Dosage: UNK
     Route: 048
  6. DUTASTERIDE [Concomitant]
     Active Substance: DUTASTERIDE
     Indication: Benign prostatic hyperplasia
     Dosage: UNK
     Route: 048
  7. GLYBURIDE [Concomitant]
     Active Substance: GLYBURIDE
     Indication: Diabetes mellitus
     Dosage: UNK
     Route: 048
  8. SILODOSIN [Concomitant]
     Active Substance: SILODOSIN
     Indication: Benign prostatic hyperplasia
     Dosage: UNK
     Route: 048
  9. DOWNAT [Concomitant]
     Indication: Benign prostatic hyperplasia
     Dosage: UNK
     Route: 048
  10. VOGLIBOSE [Concomitant]
     Active Substance: VOGLIBOSE
     Indication: Diabetes mellitus
     Dosage: UNK UNK, QD
     Route: 048
  11. NICERGOLINE [Concomitant]
     Active Substance: NICERGOLINE
     Indication: Cerebral infarction
     Dosage: UNK
     Route: 048
  12. RABEPRAZOLE SODIUM [Concomitant]
     Active Substance: RABEPRAZOLE SODIUM
     Indication: Product used for unknown indication
     Dosage: UNK
     Route: 048
  13. DEXAN [DEXAMETHASONE] [Concomitant]
     Indication: Product used for unknown indication
     Dosage: UNK
     Route: 062

REACTIONS (14)
  - Malignant neoplasm progression [Fatal]
  - Polymyositis [Recovered/Resolved with Sequelae]
  - Myasthenia gravis crisis [Not Recovered/Not Resolved]
  - Immune-mediated myocarditis [Recovered/Resolved]
  - Muscular weakness [Unknown]
  - Hypothyroidism [Recovered/Resolved]
  - Plasmapheresis [Unknown]
  - Aspiration [Unknown]
  - Respiratory failure [Unknown]
  - Pneumonia [Unknown]
  - Cytomegalovirus infection [Unknown]
  - Pancytopenia [Unknown]
  - Alanine aminotransferase increased [Recovered/Resolved]
  - Aspartate aminotransferase increased [Recovered/Resolved]

NARRATIVE: CASE EVENT DATE: 20150602
